FAERS Safety Report 10673658 (Version 1)
Quarter: 2014Q4

REPORT INFORMATION
  Report Type: Spontaneous
  Country: GB (occurrence: GB)
  Receive Date: 20141224
  Receipt Date: 20141224
  Transmission Date: 20150529
  Serious: Yes (Hospitalization)
  Sender: FDA-Public Use
  Company Number: GB-AMGEN-GBRSP2014099502

PATIENT
  Age: 57 Year
  Sex: Female

DRUGS (21)
  1. DOXAZOSIN [Concomitant]
     Active Substance: DOXAZOSIN\DOXAZOSIN MESYLATE
  2. TRAMADOL [Concomitant]
     Active Substance: TRAMADOL
  3. PROLIA [Suspect]
     Active Substance: DENOSUMAB
     Indication: OSTEOPOROSIS
     Dosage: 60 MG, UNK
     Route: 058
     Dates: start: 20141201, end: 20141201
  4. CLOPIDOGREL [Concomitant]
     Active Substance: CLOPIDOGREL BISULFATE
  5. CYCLIZINE [Concomitant]
     Active Substance: CYCLIZINE
  6. GABAPENTIN. [Concomitant]
     Active Substance: GABAPENTIN
  7. ISOSORBIDE MONONITRATE. [Concomitant]
     Active Substance: ISOSORBIDE MONONITRATE
  8. SALBUTAMOL [Concomitant]
     Active Substance: ALBUTEROL
  9. AMOXICILLIN. [Concomitant]
     Active Substance: AMOXICILLIN
  10. CALCICHEW D3 [Concomitant]
     Active Substance: CALCIUM\CHOLECALCIFEROL
  11. FUROSEMIDE. [Concomitant]
     Active Substance: FUROSEMIDE
  12. IVABRADINE [Concomitant]
     Active Substance: IVABRADINE
  13. FENTANYL. [Concomitant]
     Active Substance: FENTANYL
  14. PARACETAMOL [Concomitant]
     Active Substance: ACETAMINOPHEN
  15. SPIRONOLACTONE. [Concomitant]
     Active Substance: SPIRONOLACTONE
  16. SUMATRIPTAN. [Concomitant]
     Active Substance: SUMATRIPTAN
  17. CARBAMAZEPINE. [Concomitant]
     Active Substance: CARBAMAZEPINE
  18. CO-BENELDOPA [Concomitant]
     Active Substance: BENSERAZIDE HYDROCHLORIDE\LEVODOPA
  19. LOSARTAN [Concomitant]
     Active Substance: LOSARTAN
  20. SERETIDE [Concomitant]
     Active Substance: FLUTICASONE FUROATE\SALMETEROL XINAFOATE
  21. SODIUM BICARBONATE. [Concomitant]
     Active Substance: SODIUM BICARBONATE

REACTIONS (5)
  - Feeling hot [Recovering/Resolving]
  - Malaise [Recovering/Resolving]
  - Paraesthesia [Recovering/Resolving]
  - Hyperhidrosis [Recovering/Resolving]
  - Hypocalcaemia [Recovering/Resolving]

NARRATIVE: CASE EVENT DATE: 20141206
